FAERS Safety Report 8020531-5 (Version None)
Quarter: 2012Q1

REPORT INFORMATION
  Report Type: 
  Country: None (occurrence: None)
  Receive Date: 20120103
  Receipt Date: 20111223
  Transmission Date: 20120608
  Serious: Yes (Other)
  Sender: FDA-Public Use
  Company Number: US-ROCHE-1024934

PATIENT
  Age: 91 Year
  Sex: Female

DRUGS (1)
  1. BONIVA [Suspect]
     Indication: OSTEOPENIA
     Route: 048

REACTIONS (12)
  - HYPOAESTHESIA [None]
  - SWELLING [None]
  - SCOLIOSIS [None]
  - BRUXISM [None]
  - GAIT DISTURBANCE [None]
  - PAIN IN EXTREMITY [None]
  - PAIN IN JAW [None]
  - BONE PAIN [None]
  - MYALGIA [None]
  - MASTICATION DISORDER [None]
  - FALL [None]
  - SPINAL FUSION SURGERY [None]
